FAERS Safety Report 9105612 (Version 1)
Quarter: 2013Q1

REPORT INFORMATION
  Report Type: Spontaneous
  Country: US (occurrence: US)
  Receive Date: 20130221
  Receipt Date: 20130221
  Transmission Date: 20140127
  Serious: Yes (Life-Threatening, Hospitalization)
  Sender: FDA-Public Use
  Company Number: US-GLAXOSMITHKLINE-A0919029A

PATIENT
  Age: 43 Year
  Sex: Male
  Weight: 66 kg

DRUGS (3)
  1. FLOLAN [Suspect]
     Indication: PULMONARY ARTERIAL HYPERTENSION
     Route: 042
     Dates: start: 20030517
  2. REMERON [Suspect]
     Indication: PRODUCT USED FOR UNKNOWN INDICATION
  3. OXYGEN [Concomitant]

REACTIONS (4)
  - Pneumonia [Recovered/Resolved]
  - Cough [Recovered/Resolved]
  - Constipation [Not Recovered/Not Resolved]
  - Dyspnoea [Not Recovered/Not Resolved]
